FAERS Safety Report 7532539-4 (Version None)
Quarter: 2011Q2

REPORT INFORMATION
  Report Type: 
  Country: None (occurrence: None)
  Receive Date: 20110608
  Receipt Date: 20110526
  Transmission Date: 20111010
  Serious: Yes (Other)
  Sender: FDA-Public Use
  Company Number: PHHY2011DE45879

PATIENT
  Age: 8 Year
  Sex: Male

DRUGS (3)
  1. SERTRALINE HYDROCHLORIDE [Interacting]
     Dosage: UNK
     Dates: start: 20110301, end: 20110301
  2. RISPERDAL [Interacting]
     Dosage: UNK
  3. RITALIN [Suspect]
     Dosage: 50 MG, QD
     Route: 048

REACTIONS (2)
  - TIC [None]
  - DRUG INTERACTION [None]
